FAERS Safety Report 6968786-X (Version None)
Quarter: 2010Q3

REPORT INFORMATION
  Report Type: 
  Country: None (occurrence: None)
  Receive Date: 20100907
  Receipt Date: 20100830
  Transmission Date: 20110219
  Serious: Yes (Hospitalization, Other)
  Sender: FDA-Public Use
  Company Number: PHHY2008JP08408

PATIENT
  Sex: Male
  Weight: 53 kg

DRUGS (3)
  1. GLEEVEC [Suspect]
     Indication: GASTROINTESTINAL STROMAL TUMOUR
     Dosage: 400 MG/DAY
     Route: 048
     Dates: start: 20080401, end: 20080413
  2. GLEEVEC [Suspect]
     Indication: METASTASES TO LIVER
     Dosage: 300 MG/DAY
     Route: 048
     Dates: start: 20080414, end: 20080425
  3. GLEEVEC [Suspect]
     Dosage: 400 MG/DAY
     Route: 048
     Dates: start: 20080504

REACTIONS (19)
  - ABDOMINAL PAIN [None]
  - ANAEMIA [None]
  - ASCITES [None]
  - BLOOD ALKALINE PHOSPHATASE INCREASED [None]
  - BLOOD BILIRUBIN INCREASED [None]
  - BLOOD LACTATE DEHYDROGENASE INCREASED [None]
  - GENE MUTATION IDENTIFICATION TEST POSITIVE [None]
  - INTRA-ABDOMINAL HAEMORRHAGE [None]
  - JEJUNECTOMY [None]
  - LAPAROTOMY [None]
  - METASTASIS [None]
  - OMENTECTOMY [None]
  - PERITONEAL HAEMORRHAGE [None]
  - PERITONITIS [None]
  - SURGERY [None]
  - TUMOUR EXCISION [None]
  - TUMOUR HAEMORRHAGE [None]
  - TUMOUR NECROSIS [None]
  - TUMOUR PERFORATION [None]
